FAERS Safety Report 8018913-0 (Version None)
Quarter: 2012Q1

REPORT INFORMATION
  Report Type: 
  Country: None (occurrence: None)
  Receive Date: 20120103
  Receipt Date: 20111228
  Transmission Date: 20120608
  Serious: No
  Sender: FDA-Public Use
  Company Number: US-TEVA-315414USA

PATIENT
  Sex: Female
  Weight: 93.978 kg

DRUGS (4)
  1. HYDROCHLOROTHIAZIDE [Concomitant]
     Indication: HYPERTENSION
  2. LISINOPRIL [Concomitant]
     Indication: HYPERTENSION
  3. PLAN B ONE-STEP [Suspect]
     Dosage: 1.5 MILLIGRAM;
     Route: 048
     Dates: start: 20111226, end: 20111226
  4. PLAN B ONE-STEP [Suspect]
     Indication: POST COITAL CONTRACEPTION
     Dosage: 1.5 MILLIGRAM;
     Route: 048
     Dates: start: 20111119, end: 20111119

REACTIONS (6)
  - ABDOMINAL PAIN LOWER [None]
  - MENSTRUATION DELAYED [None]
  - BACK PAIN [None]
  - MENSTRUATION IRREGULAR [None]
  - BREAST PAIN [None]
  - HEADACHE [None]
